FAERS Safety Report 9694049 (Version 1)
Quarter: 2013Q4

REPORT INFORMATION
  Report Type: Spontaneous
  Country: KP (occurrence: None)
  Receive Date: 20131114
  Receipt Date: 20131114
  Transmission Date: 20140711
  Serious: Yes (Other)
  Sender: FDA-Public Use
  Company Number: KR-AIKEM-000224

PATIENT
  Age: 10 Year
  Sex: Male

DRUGS (5)
  1. MYCOPHENOLATE MOFETIL [Suspect]
     Indication: PROPHYLAXIS AGAINST GRAFT VERSUS HOST DISEASE
  2. TACROLIMUS [Suspect]
     Indication: PROPHYLAXIS AGAINST GRAFT VERSUS HOST DISEASE
  3. FLUDARABINE (FLUDARABINE) [Concomitant]
  4. RITUXIMAB (RITUXIMAB) [Concomitant]
  5. CYCLOSPORIN (CYCLOSPORIN) [Concomitant]

REACTIONS (7)
  - Cystitis haemorrhagic [None]
  - Viraemia [None]
  - BK virus infection [None]
  - Transplant failure [None]
  - Stem cell transplant [None]
  - Acute graft versus host disease in skin [None]
  - Immunosuppression [None]
